FAERS Safety Report 20651258 (Version 1)
Quarter: 2022Q1

REPORT INFORMATION
  Report Type: Spontaneous
  Country: IT (occurrence: None)
  Receive Date: 20220329
  Receipt Date: 20220329
  Transmission Date: 20220423
  Serious: Yes (Other)
  Sender: FDA-Public Use
  Company Number: IT-ROCHE-3055552

PATIENT
  Age: 6 Year
  Sex: Female

DRUGS (2)
  1. PULMOZYME [Suspect]
     Active Substance: DORNASE ALFA
     Indication: Cystic fibrosis
     Dosage: 2500U/2.5ML (1VIAL/DAY)
     Route: 055
  2. PULMOZYME [Suspect]
     Active Substance: DORNASE ALFA
     Dosage: 2500U/2.5ML (2 VIALS/DAY)
     Route: 055

REACTIONS (3)
  - Staphylococcus test positive [Unknown]
  - Pneumonitis [Unknown]
  - Off label use [Unknown]
